FAERS Safety Report 7726577-6 (Version None)
Quarter: 2011Q3

REPORT INFORMATION
  Report Type: 
  Country: None (occurrence: None)
  Receive Date: 20110902
  Receipt Date: 20110826
  Transmission Date: 20111222
  Serious: Yes (Hospitalization, Other)
  Sender: FDA-Public Use
  Company Number: PHEH2011US02791

PATIENT
  Sex: Female

DRUGS (6)
  1. ACETAMINOPHEN [Concomitant]
     Dosage: UNK UKN, UNK
     Dates: start: 20110707
  2. LEVAQUIN [Concomitant]
     Dosage: 500 MG, UNK
     Dates: start: 20110617
  3. LEVOFLOXACIN [Concomitant]
     Dosage: 500 MG, UNK
     Dates: start: 20110811
  4. SANDOSTATIN [Concomitant]
     Dosage: 100 UG/ML, UNK
  5. AFINITOR [Suspect]
     Indication: NEOPLASM MALIGNANT
     Dosage: 10 MG, QD
     Route: 048
     Dates: start: 20110719
  6. POTASSIUM CHLORIDE [Concomitant]
     Dosage: 20 MEQ, UNK
     Dates: start: 20110811

REACTIONS (6)
  - BLOOD POTASSIUM DECREASED [None]
  - WHITE BLOOD CELL COUNT DECREASED [None]
  - PLATELET COUNT DECREASED [None]
  - BLOOD COUNT ABNORMAL [None]
  - BLOOD MAGNESIUM DECREASED [None]
  - RED BLOOD CELL COUNT DECREASED [None]
